FAERS Safety Report 10166821 (Version 1)
Quarter: 2014Q2

REPORT INFORMATION
  Report Type: Spontaneous
  Country: US (occurrence: US)
  Receive Date: 20140512
  Receipt Date: 20140512
  Transmission Date: 20141212
  Serious: No
  Sender: FDA-Public Use
  Company Number: US-BAYER-2014-067762

PATIENT
  Age: 90 Year
  Sex: Male
  Weight: 210 kg

DRUGS (1)
  1. ALEVE CAPLET [Suspect]
     Indication: MYALGIA
     Dosage: 2 DF, QD
     Route: 048
     Dates: start: 201403, end: 20140506

REACTIONS (3)
  - Oedema peripheral [Not Recovered/Not Resolved]
  - Erythema [Not Recovered/Not Resolved]
  - Incorrect dose administered [None]
